FAERS Safety Report 23515179 (Version 1)
Quarter: 2024Q1

REPORT INFORMATION
  Report Type: Spontaneous
  Country: US (occurrence: US)
  Receive Date: 20240213
  Receipt Date: 20240213
  Transmission Date: 20240410
  Serious: Yes (Other)
  Sender: FDA-Public Use
  Company Number: US-BRISTOL-MYERS SQUIBB COMPANY-2024-020000

PATIENT
  Age: 51 Year
  Sex: Female

DRUGS (1)
  1. REVLIMID [Suspect]
     Active Substance: LENALIDOMIDE
     Indication: Plasma cell myeloma
     Dosage: 10 MG DAILY 14DAYS ON THEN 14 DAYS OFF
     Route: 048
     Dates: start: 20240117, end: 20240130

REACTIONS (3)
  - White blood cell count abnormal [Unknown]
  - Red blood cell count abnormal [Unknown]
  - Off label use [Unknown]
